FAERS Safety Report 21223981 (Version 1)
Quarter: 2022Q3

REPORT INFORMATION
  Report Type: Spontaneous
  Country: US (occurrence: None)
  Receive Date: 20220817
  Receipt Date: 20220817
  Transmission Date: 20221026
  Serious: Yes (Other)
  Sender: FDA-Public Use
  Company Number: None

PATIENT
  Age: 57 Year
  Sex: Male
  Weight: 72 kg

DRUGS (6)
  1. COPAXONE [Suspect]
     Active Substance: GLATIRAMER ACETATE
     Indication: Multiple sclerosis
     Dosage: OTHER QUANTITY : 1 INJECTION(S);?OTHER FREQUENCY : 3 TIMES A WEEK;?OTHER ROUTE : INJECTED IN STOMACH
     Route: 050
  2. COPAXONE [Concomitant]
     Active Substance: GLATIRAMER ACETATE
  3. OMEPRAZOLE [Concomitant]
     Active Substance: OMEPRAZOLE
  4. LOSARTAN [Concomitant]
     Active Substance: LOSARTAN
  5. VITAMIN D3 [Concomitant]
     Active Substance: CHOLECALCIFEROL
  6. VITAMINS [Concomitant]
     Active Substance: VITAMINS

REACTIONS (4)
  - Erythema [None]
  - Erythema [None]
  - Burning sensation [None]
  - Spinal pain [None]

NARRATIVE: CASE EVENT DATE: 20220813
